FAERS Safety Report 26099766 (Version 1)
Quarter: 2025Q4

REPORT INFORMATION
  Report Type: Spontaneous
  Country: EU (occurrence: EU)
  Receive Date: 20251128
  Receipt Date: 20251128
  Transmission Date: 20260118
  Serious: No
  Sender: ALKEM
  Company Number: EU-ALKEM LABORATORIES LIMITED-ES-ALKEM-2025-10448

PATIENT
  Age: 4 Decade
  Sex: Male

DRUGS (13)
  1. ARIPIPRAZOLE [Suspect]
     Active Substance: ARIPIPRAZOLE
     Indication: Psychotic disorder
     Dosage: UNK
     Route: 048
  2. OLANZAPINE [Suspect]
     Active Substance: OLANZAPINE
     Indication: Psychotic disorder
     Dosage: UNK
     Route: 065
  3. CLOZAPINE [Interacting]
     Active Substance: CLOZAPINE
     Indication: Schizophrenia
     Dosage: UNK
     Route: 065
     Dates: start: 2016
  4. CLOZAPINE [Interacting]
     Active Substance: CLOZAPINE
     Dosage: UNK (SECOND CLOZAPINE)
     Route: 065
     Dates: start: 202107
  5. CLOZAPINE [Interacting]
     Active Substance: CLOZAPINE
     Dosage: 300 MILLIGRAM, QD (GRADUALLY TITRATED)
     Route: 065
     Dates: start: 2021
  6. CLOZAPINE [Interacting]
     Active Substance: CLOZAPINE
     Dosage: UNK (INCREASED DOSE)
     Route: 065
  7. CLOZAPINE [Interacting]
     Active Substance: CLOZAPINE
     Dosage: 50 MILLIGRAM (REDUCTION DOSE)
     Route: 065
  8. RIFAMPIN [Interacting]
     Active Substance: RIFAMPIN
     Indication: Acne cystic
     Dosage: 300 MILLIGRAM, BID (12-WEEK COURSE)
     Route: 065
  9. RIFAMPIN [Interacting]
     Active Substance: RIFAMPIN
     Indication: Abscess
     Dosage: UNK (FROM 275 TO 425 MILLIGRAM, A -50 PERCENT INCREASE)
     Route: 065
  10. CLINDAMYCIN [Concomitant]
     Active Substance: CLINDAMYCIN
     Indication: Acne cystic
     Dosage: 300 MILLIGRAM, BID (12-WEEK COURSE)
     Route: 065
  11. CLINDAMYCIN [Concomitant]
     Active Substance: CLINDAMYCIN
     Indication: Abscess
  12. FLUPENTIXOL [Concomitant]
     Active Substance: FLUPENTIXOL
     Indication: Schizophrenia
     Dosage: UNK
     Route: 048
  13. PALIPERIDONE [Concomitant]
     Active Substance: PALIPERIDONE
     Indication: Schizophrenia
     Dosage: UNK (DEPOT)
     Route: 065

REACTIONS (3)
  - Therapy non-responder [Unknown]
  - Tachycardia [Recovered/Resolved]
  - Drug interaction [Unknown]
